FAERS Safety Report 5095034-0 (Version None)
Quarter: 2006Q3

REPORT INFORMATION
  Report Type: 
  Country: None (occurrence: None)
  Receive Date: 20060731
  Receipt Date: 20060419
  Transmission Date: 20061208
  Serious: No
  Sender: FDA-Public Use
  Company Number: 2006PV012324

PATIENT
  Age: 74 Year
  Sex: Female
  Weight: 108.8633 kg

DRUGS (4)
  1. BYETTA [Suspect]
     Indication: DIABETES MELLITUS NON-INSULIN-DEPENDENT
     Dosage: 5 MCG;BID;SC
     Route: 058
     Dates: start: 20060419, end: 20060617
  2. AMARYL [Concomitant]
  3. GLUCOPHAGE [Concomitant]
  4. GLUCOPHAGE XR [Concomitant]

REACTIONS (4)
  - BLOOD GLUCOSE DECREASED [None]
  - HEART RATE INCREASED [None]
  - NAUSEA [None]
  - TREMOR [None]
